FAERS Safety Report 14914564 (Version 1)
Quarter: 2018Q2

REPORT INFORMATION
  Report Type: Spontaneous
  Country: US (occurrence: US)
  Receive Date: 20180518
  Receipt Date: 20180518
  Transmission Date: 20180711
  Serious: Yes (Hospitalization)
  Sender: FDA-Public Use
  Company Number: US-TEVA-2018-US-891422

PATIENT
  Sex: Female
  Weight: 54 kg

DRUGS (5)
  1. FENTORA [Suspect]
     Active Substance: FENTANYL CITRATE
     Indication: BACK PAIN
     Dosage: INITIALLY STARTING AT 6 TO 7 TABLETS PER DAY
  2. DURAGESIC [Concomitant]
     Active Substance: FENTANYL
  3. DILAUDID [Concomitant]
     Active Substance: HYDROMORPHONE HYDROCHLORIDE
  4. VALIUM [Concomitant]
     Active Substance: DIAZEPAM
  5. LIDODERM [Concomitant]
     Active Substance: LIDOCAINE

REACTIONS (2)
  - Probiotic therapy [Unknown]
  - Complex regional pain syndrome [Unknown]
